FAERS Safety Report 7618287-0 (Version None)
Quarter: 2011Q3

REPORT INFORMATION
  Report Type: 
  Country: None (occurrence: None)
  Receive Date: 20110718
  Receipt Date: 20110706
  Transmission Date: 20111222
  Serious: Yes (Death)
  Sender: FDA-Public Use
  Company Number: JP-ROCHE-759532

PATIENT
  Age: 57 Year
  Sex: Male

DRUGS (2)
  1. CELLCEPT [Suspect]
     Indication: PROPHYLAXIS AGAINST TRANSPLANT REJECTION
     Dosage: DOSAGE IS UNCERTAIN.
     Route: 048
  2. METHYLPREDNISOLONE [Concomitant]
     Dosage: DOSAGE IS UNCERTAIN, FORM:PERORAL AGENT
     Route: 048

REACTIONS (2)
  - DIFFUSE LARGE B-CELL LYMPHOMA [None]
  - CYTOMEGALOVIRUS TEST POSITIVE [None]
